FAERS Safety Report 17209836 (Version 1)
Quarter: 2019Q4

REPORT INFORMATION
  Report Type: Report from Study
  Country: BR (occurrence: BR)
  Receive Date: 20191227
  Receipt Date: 20191227
  Transmission Date: 20200122
  Serious: Yes (Other)
  Sender: FDA-Public Use
  Company Number: BR-BRISTOL-MYERS SQUIBB COMPANY-BMS-2017-122595

PATIENT
  Age: 42 Year
  Sex: Female

DRUGS (5)
  1. ABATACEPT [Suspect]
     Active Substance: ABATACEPT
     Indication: RHEUMATOID ARTHRITIS
     Dosage: 1000 MG, QMO
     Route: 042
     Dates: end: 201910
  2. METOTREXATE [Concomitant]
     Active Substance: METHOTREXATE SODIUM
     Indication: RHEUMATOID ARTHRITIS
     Dosage: 20 MILLIGRAM A WEEK
     Route: 048
  3. ABATACEPT [Suspect]
     Active Substance: ABATACEPT
     Indication: PRODUCT USED FOR UNKNOWN INDICATION
     Dosage: 1000 MG, QMO
     Route: 042
  4. LEVOTHYROXINE. [Concomitant]
     Active Substance: LEVOTHYROXINE
     Indication: HYPOTHYROIDISM
     Dosage: 200 MICROGRAM
     Route: 065
  5. ARADOIS [Concomitant]
     Active Substance: LOSARTAN POTASSIUM
     Indication: HYPOTHYROIDISM
     Dosage: 100 UNK
     Route: 065

REACTIONS (5)
  - Influenza [Recovered/Resolved]
  - Pharyngitis [Recovered/Resolved]
  - Off label use [Unknown]
  - Fibromyalgia [Not Recovered/Not Resolved]
  - IgA nephropathy [Not Recovered/Not Resolved]

NARRATIVE: CASE EVENT DATE: 201910
